FAERS Safety Report 6178657-7 (Version None)
Quarter: 2009Q2

REPORT INFORMATION
  Report Type: 
  Country: None (occurrence: None)
  Receive Date: 20090430
  Receipt Date: 20090422
  Transmission Date: 20091009
  Serious: Yes (Life-Threatening, Hospitalization)
  Sender: FDA-Public Use
  Company Number: 20096167

PATIENT
  Sex: Female

DRUGS (1)
  1. LIORESAL [Suspect]
     Indication: MUSCLE SPASTICITY
     Dosage: 235 MCG, DAILY, INTRATHECAL
     Route: 037

REACTIONS (13)
  - ABNORMAL BEHAVIOUR [None]
  - ANXIETY [None]
  - CATHETER RELATED COMPLICATION [None]
  - COMA [None]
  - INTRACRANIAL HYPOTENSION [None]
  - MUSCLE RIGIDITY [None]
  - MUSCLE SPASTICITY [None]
  - PANIC REACTION [None]
  - PRODUCT QUALITY ISSUE [None]
  - PRURITUS [None]
  - SCOLIOSIS [None]
  - SEROMA [None]
  - WITHDRAWAL SYNDROME [None]
